FAERS Safety Report 18199903 (Version 5)
Quarter: 2021Q4

REPORT INFORMATION
  Report Type: Report from Study
  Country: CN (occurrence: CN)
  Receive Date: 20200826
  Receipt Date: 20211230
  Transmission Date: 20220303
  Serious: Yes (Hospitalization)
  Sender: FDA-Public Use
  Company Number: CN-PFIZER INC-2020328570

PATIENT
  Age: 50 Year
  Sex: Female
  Weight: 40.6 kg

DRUGS (2)
  1. IBRANCE [Suspect]
     Active Substance: PALBOCICLIB
     Indication: Breast cancer metastatic
     Dosage: 125 MG, DAILY (EVERY DAY WITHIN 1 HOUR AFTER BREAKFAST)
     Route: 048
     Dates: start: 20200813
  2. D-0502 [Suspect]
     Active Substance: D-0502
     Indication: Breast cancer metastatic
     Dosage: 400 MG, DAILY (EVERY DAY WITHIN 1 HOUR AFTER BREAKFAST)
     Route: 048
     Dates: start: 20200813

REACTIONS (1)
  - Dizziness [Recovered/Resolved]

NARRATIVE: CASE EVENT DATE: 20200813
